FAERS Safety Report 9530327 (Version 1)
Quarter: 2013Q3

REPORT INFORMATION
  Report Type: Spontaneous
  Country: US (occurrence: US)
  Receive Date: 20130917
  Receipt Date: 20130917
  Transmission Date: 20140515
  Serious: Yes (Death, Other)
  Sender: FDA-Public Use
  Company Number: US-AMGEN-USASP2013064256

PATIENT
  Age: 87 Year
  Sex: Female

DRUGS (1)
  1. PROLIA [Suspect]
     Indication: OSTEOPOROSIS POSTMENOPAUSAL
     Dosage: 60 MG, UNK
     Route: 065

REACTIONS (7)
  - Death [Fatal]
  - Deafness [Unknown]
  - Hyperparathyroidism [Unknown]
  - Vitamin D decreased [Unknown]
  - Hypothyroidism [Unknown]
  - Hypercholesterolaemia [Unknown]
  - Hypertension [Unknown]
